FAERS Safety Report 10529867 (Version 7)
Quarter: 2014Q4

REPORT INFORMATION
  Report Type: Spontaneous
  Country: US (occurrence: None)
  Receive Date: 20141017
  Receipt Date: 20141229
  Transmission Date: 20150528
  Serious: Yes (Hospitalization, Other)
  Sender: FDA-Public Use
  Company Number: ADR-2014-01918

PATIENT
  Age: 19 Year
  Sex: Female

DRUGS (6)
  1. TOPAMAX [Suspect]
     Active Substance: TOPIRAMATE
  2. GABAPENTIN. [Suspect]
     Active Substance: GABAPENTIN
  3. ETHINYL ESTRADIOL\LEVONORGESTREL [Suspect]
     Active Substance: ETHINYL ESTRADIOL\LEVONORGESTREL
  4. NEXIUM [Suspect]
     Active Substance: ESOMEPRAZOLE MAGNESIUM
  5. LIORESAL [Suspect]
     Active Substance: BACLOFEN
     Indication: MUSCLE SPASTICITY
     Dosage: (SEE B5)
  6. ROWASA [Suspect]
     Active Substance: MESALAMINE

REACTIONS (8)
  - Device infusion issue [None]
  - Dystonia [None]
  - Incorrect dose administered by device [None]
  - Hypotonia [None]
  - Somnolence [None]
  - Seizure [None]
  - Change of bowel habit [None]
  - Device malfunction [None]
